FAERS Safety Report 24716121 (Version 1)
Quarter: 2024Q4

REPORT INFORMATION
  Report Type: Spontaneous
  Country: NL (occurrence: NL)
  Receive Date: 20241210
  Receipt Date: 20241210
  Transmission Date: 20250114
  Serious: Yes (Other)
  Sender: RANBAXY
  Company Number: NL-SUN PHARMACEUTICAL INDUSTRIES LTD-2024RR-483408

PATIENT
  Age: 74 Year
  Sex: Male

DRUGS (1)
  1. SUNITINIB [Suspect]
     Active Substance: SUNITINIB
     Indication: Renal cell carcinoma
     Dosage: 50 MILLIGRAM, DAILY, 4-WEEK ON 2-WEEK OFF
     Route: 065

REACTIONS (1)
  - Vogt-Koyanagi-Harada disease [Unknown]
